FAERS Safety Report 9266790 (Version 1)
Quarter: 2013Q2

REPORT INFORMATION
  Report Type: Spontaneous
  Country: US (occurrence: US)
  Receive Date: 20130502
  Receipt Date: 20130502
  Transmission Date: 20140414
  Serious: Yes (Hospitalization, Other)
  Sender: FDA-Public Use
  Company Number: US-BAYER-2013-053348

PATIENT
  Age: 20 Year
  Sex: Female

DRUGS (3)
  1. YAZ [Suspect]
  2. METFORMIN [Concomitant]
  3. PROVERA [Concomitant]

REACTIONS (3)
  - Thrombophlebitis superficial [None]
  - Deep vein thrombosis [None]
  - Pulmonary embolism [None]
